FAERS Safety Report 10219662 (Version 1)
Quarter: 2014Q1

REPORT INFORMATION
  Report Type: Spontaneous
  Country: US (occurrence: None)
  Receive Date: 20140306
  Receipt Date: 20140306
  Transmission Date: 20141002
  Serious: Yes (Hospitalization, Other)
  Sender: FDA-Public Use
  Company Number: 163-21880-13101180

PATIENT
  Age: 76 Year
  Sex: Male
  Weight: 101.61 kg

DRUGS (5)
  1. REVLIMID (LENALIDOMIDE) (CAPSULES) [Suspect]
     Indication: 5Q MINUS SYNDROME
     Dosage: 28 IN 28 D
     Route: 048
     Dates: start: 20120201, end: 20120423
  2. VIDAZA [Suspect]
     Indication: 5Q MINUS SYNDROME
     Route: 042
     Dates: start: 20101129, end: 20130323
  3. CHOLESTEROL MEDICATIONS (OTHER THERAPEUTIC PRODUCTS) [Concomitant]
  4. CARDIAC MEDICATIONS (OTHER THERAPEUTIC PRODUCTS) [Concomitant]
  5. HYPERTENSIVES (OTHER THERAPEUTIC PRODUCTS) [Concomitant]

REACTIONS (10)
  - Infection [None]
  - Full blood count decreased [None]
  - Platelet count decreased [None]
  - White blood cell count decreased [None]
  - Tooth infection [None]
  - Eye pain [None]
  - Headache [None]
  - Neutropenia [None]
  - Blood pressure decreased [None]
  - No therapeutic response [None]
